FAERS Safety Report 4773955-3 (Version None)
Quarter: 2005Q3

REPORT INFORMATION
  Report Type: 
  Country: None (occurrence: None)
  Receive Date: 20050920
  Receipt Date: 20050902
  Transmission Date: 20060218
  Serious: Yes (Death, Other)
  Sender: FDA-Public Use
  Company Number: 200511997DE

PATIENT
  Age: 61 Year
  Sex: Male

DRUGS (5)
  1. TAXOTERE [Suspect]
     Indication: SALIVARY GLAND NEOPLASM
     Dates: end: 20050131
  2. CORTISONE ACETATE TAB [Concomitant]
     Indication: HYPERSENSITIVITY
     Dates: start: 20040101
  3. ANTIBIOTICS [Concomitant]
  4. CARBOPLATIN [Concomitant]
     Dates: start: 20040101, end: 20040101
  5. ETOPOSIDE [Concomitant]
     Dates: start: 20040101, end: 20040101

REACTIONS (20)
  - ADENOID CYSTIC CARCINOMA [None]
  - ASTHENIA [None]
  - COMA [None]
  - DYSGEUSIA [None]
  - DYSPNOEA [None]
  - GENERAL PHYSICAL HEALTH DETERIORATION [None]
  - HYPERHIDROSIS [None]
  - HYPERSENSITIVITY [None]
  - INTERSTITIAL LUNG DISEASE [None]
  - LUNG DISORDER [None]
  - LUNG INFILTRATION [None]
  - LYMPHANGIOSIS CARCINOMATOSA [None]
  - PNEUMOMEDIASTINUM [None]
  - PNEUMONIA PRIMARY ATYPICAL [None]
  - PULMONARY MYCOSIS [None]
  - RENAL FAILURE [None]
  - RENAL FAILURE ACUTE [None]
  - RESPIRATORY FAILURE [None]
  - RESPIRATORY RATE INCREASED [None]
  - RIB FRACTURE [None]
